FAERS Safety Report 11872677 (Version 1)
Quarter: 2015Q4

REPORT INFORMATION
  Report Type: Spontaneous
  Country: US (occurrence: US)
  Receive Date: 20151228
  Receipt Date: 20151228
  Transmission Date: 20160305
  Serious: No
  Sender: FDA-Public Use
  Company Number: US-ALK ABELLO INC-1045937

PATIENT
  Age: 66 Year
  Sex: Male

DRUGS (35)
  1. MIXED RAGWEED [Suspect]
     Active Substance: AMBROSIA ARTEMISIIFOLIA POLLEN\AMBROSIA TRIFIDA POLLEN
  2. STANDARDIZED GRASS POLLEN, TIMOTHY [Suspect]
     Active Substance: PHLEUM PRATENSE POLLEN
  3. ASPERGILLUS FUMIGATUS. [Suspect]
     Active Substance: ASPERGILLUS FUMIGATUS
  4. ALTACE [Concomitant]
     Active Substance: RAMIPRIL
  5. CELEXA [Concomitant]
     Active Substance: CITALOPRAM HYDROBROMIDE
  6. COCKLEBUR POLLEN [Suspect]
     Active Substance: XANTHIUM STRUMARIUM POLLEN
  7. HORMODENDRUM [Suspect]
     Active Substance: CLADOSPORIUM CLADOSPORIOIDES
  8. HELMINTHOSPORIUM [Suspect]
     Active Substance: COCHLIOBOLUS SATIVUS
  9. MAPLE POLLEN MIXTURE [Suspect]
     Active Substance: ACER RUBRUM POLLEN\ACER SACCHARINUM POLLEN\ACER SACCHARUM POLLEN
  10. EASTERN COTTONWOOD POLLEN [Suspect]
     Active Substance: POPULUS DELTOIDES POLLEN
  11. CAT PELT, STANDARDIZED [Suspect]
     Active Substance: FELIS CATUS SKIN
  12. HOUSE DUST MITE, DERMATOPHAGOIDES PTERONYSSINUS [Suspect]
     Active Substance: DERMATOPHAGOIDES PTERONYSSINUS
  13. ENGLISH PLANTAIN POLLEN [Suspect]
     Active Substance: PLANTAGO LANCEOLATA POLLEN
  14. POLLENS - TREES, PINE MIX [Suspect]
     Active Substance: PINUS CONTORTA POLLEN\PINUS PONDEROSA POLLEN
  15. HOUSE DUST MITE, DERMATOPHAGOIDES FARINAE [Suspect]
     Active Substance: DERMATOPHAGOIDES FARINAE
  16. NORVASC [Concomitant]
     Active Substance: AMLODIPINE BESYLATE
  17. DOCK/SORREL MIXTURE [Suspect]
     Active Substance: RUMEX ACETOSELLA POLLEN\RUMEX CRISPUS POLLEN
  18. PECAN POLLEN [Suspect]
     Active Substance: CARYA ILLINOINENSIS POLLEN
  19. WHITE ASH POLLEN [Suspect]
     Active Substance: FRAXINUS AMERICANA POLLEN
  20. BAHIA GRASS POLLEN [Suspect]
     Active Substance: PASPALUM NOTATUM POLLEN
  21. JOHNSON GRASS POLLEN [Suspect]
     Active Substance: SORGHUM HALEPENSE POLLEN
  22. EPICOCCUM NIGRUM. [Suspect]
     Active Substance: EPICOCCUM NIGRUM
  23. INSECTS (WHOLE BODY) COCKROACH, AMERICAN PERIPLANETA AMERICANA [Suspect]
     Active Substance: PERIPLANETA AMERICANA
  24. STANDARDIZED BERMUDA GRASS [Suspect]
     Active Substance: CYNODON DACTYLON POLLEN
  25. MEADOW FESCUE GRASS, STANDARDIZED [Suspect]
     Active Substance: FESTUCA PRATENSIS POLLEN
  26. PENICILLIUM NOTATUM [Suspect]
     Active Substance: PENICILLIUM CHRYSOGENUM VAR. CHRYSOGENUM
  27. LAMBS QUARTERS POLLEN [Suspect]
     Active Substance: CHENOPODIUM ALBUM POLLEN
  28. AMERICAN ELM POLLEN [Suspect]
     Active Substance: ULMUS AMERICANA POLLEN
  29. CANDIDA [Suspect]
     Active Substance: CANDIDA ALBICANS
  30. FEATHER MIX, CHICKEN/DUCK/GOOSE [Suspect]
     Active Substance: ANAS PLATYRHYNCHOS FEATHER\ANSER ANSER FEATHER\GALLUS GALLUS FEATHER
  31. PRILOSEC [Concomitant]
     Active Substance: OMEPRAZOLE MAGNESIUM
  32. POLLENS - WEEDS, CARELESS/PIGWEED MIX [Suspect]
     Active Substance: AMARANTHUS PALMERI POLLEN\AMARANTHUS RETROFLEXUS POLLEN
  33. ALTERNARIA TENUIS [Suspect]
     Active Substance: ALTERNARIA ALTERNATA
  34. POLLENS - TREES, OAK MIX [Suspect]
     Active Substance: QUERCUS ALBA POLLEN\QUERCUS RUBRA POLLEN\QUERCUS VIRGINIANA POLLEN
  35. DOG HAIR [Suspect]
     Active Substance: CANIS LUPUS FAMILIARIS HAIR

REACTIONS (3)
  - Blister [Recovered/Resolved]
  - Local swelling [Recovered/Resolved]
  - Cellulitis [None]

NARRATIVE: CASE EVENT DATE: 20150318
